FAERS Safety Report 12841428 (Version 3)
Quarter: 2017Q4

REPORT INFORMATION
  Report Type: Report from Study
  Country: US (occurrence: US)
  Receive Date: 20161012
  Receipt Date: 20171106
  Transmission Date: 20180320
  Serious: Yes (Other)
  Sender: FDA-Public Use
  Company Number: US-ALLERGAN-1670287US

PATIENT
  Age: 64 Year
  Sex: Male
  Weight: 107.3 kg

DRUGS (3)
  1. BLINDED BIMATOPROST 0.015 MG INS (11048X) [Suspect]
     Active Substance: BIMATOPROST
     Indication: PRODUCT USED FOR UNKNOWN INDICATION
     Dosage: UNK
     Dates: start: 20160106, end: 20170321
  2. BLINDED BIMATOPROST 0.01 MG INS (11047X) [Suspect]
     Active Substance: BIMATOPROST
     Indication: PRODUCT USED FOR UNKNOWN INDICATION
     Dosage: UNK
     Dates: start: 20160106, end: 20170321
  3. BLINDED PLACEBO [Suspect]
     Active Substance: INVESTIGATIONAL PRODUCT
     Indication: PRODUCT USED FOR UNKNOWN INDICATION
     Dosage: UNK
     Dates: start: 20160106, end: 20170321

REACTIONS (1)
  - Corneal oedema [Recovered/Resolved]

NARRATIVE: CASE EVENT DATE: 20160927
